FAERS Safety Report 24037625 (Version 1)
Quarter: 2024Q3

REPORT INFORMATION
  Report Type: Spontaneous
  Country: US (occurrence: US)
  Receive Date: 20240702
  Receipt Date: 20240702
  Transmission Date: 20241017
  Serious: Yes (Hospitalization, Other)
  Sender: DR REDDYS
  Company Number: US-DRL-USA-LIT/USA/24/0009316

PATIENT
  Age: 62 Year
  Sex: Male

DRUGS (2)
  1. BENDAMUSTINE [Suspect]
     Active Substance: BENDAMUSTINE
     Indication: Follicular lymphoma stage IV
  2. OBINUTUZUMAB [Suspect]
     Active Substance: OBINUTUZUMAB
     Indication: Follicular lymphoma stage IV

REACTIONS (4)
  - COVID-19 pneumonia [Not Recovered/Not Resolved]
  - Pneumothorax spontaneous [Recovered/Resolved]
  - Acute respiratory failure [Not Recovered/Not Resolved]
  - Condition aggravated [Unknown]
